FAERS Safety Report 9598826 (Version 1)
Quarter: 2013Q4

REPORT INFORMATION
  Report Type: Spontaneous
  Country: US (occurrence: US)
  Receive Date: 20131004
  Receipt Date: 20131004
  Transmission Date: 20140711
  Serious: No
  Sender: FDA-Public Use
  Company Number: US-AMGEN-USASP2013026159

PATIENT
  Age: 46 Year
  Sex: Female

DRUGS (13)
  1. ENBREL [Suspect]
     Indication: PRODUCT USED FOR UNKNOWN INDICATION
     Dosage: 50 MG, QWK
     Route: 058
  2. TOPAMAX [Concomitant]
     Dosage: 100 MG, UNK
  3. ACIPHEX [Concomitant]
     Dosage: 20 MG, UNK
  4. ZYRTEC [Concomitant]
     Dosage: 10 MG, UNK
  5. NORCO [Concomitant]
     Dosage: 7.5-325, UNK
  6. GABAPENTIN [Concomitant]
     Dosage: 100 MG, UNK
  7. SOMA [Concomitant]
     Dosage: 350 MG, UNK
  8. KLONOPIN [Concomitant]
     Dosage: 1 MG, UNK
  9. TRAZODONE [Concomitant]
     Dosage: 100 MG, UNK
  10. BENADRYL                           /00000402/ [Concomitant]
     Dosage: 25 MG, UNK
  11. EFFEXOR [Concomitant]
     Dosage: 50 MG, UNK
  12. MULTIVITAMINS, PLAIN [Concomitant]
     Dosage: UNK
  13. ASA [Concomitant]
     Dosage: 81 MG, EC

REACTIONS (1)
  - Therapeutic response decreased [Unknown]
